FAERS Safety Report 23773456 (Version 3)
Quarter: 2024Q2

REPORT INFORMATION
  Report Type: Spontaneous
  Country: CA (occurrence: CA)
  Receive Date: 20240423
  Receipt Date: 20240516
  Transmission Date: 20240715
  Serious: Yes (Death, Other)
  Sender: FDA-Public Use
  Company Number: CA-ABBVIE-5724539

PATIENT
  Age: 56 Year
  Sex: Male

DRUGS (1)
  1. EPCORITAMAB [Suspect]
     Active Substance: EPCORITAMAB
     Indication: Diffuse large B-cell lymphoma
     Dosage: 4 MG/0.8ML VIAL / CYCLE 1: 0.16 MG 48MG/DAY 1, DAY 8, DAY 15, EVERY WEEK
     Route: 058
     Dates: start: 20240405, end: 20240410

REACTIONS (2)
  - Lymphoma [Fatal]
  - Palliative care [Unknown]

NARRATIVE: CASE EVENT DATE: 20240101
